FAERS Safety Report 11507280 (Version 1)
Quarter: 2015Q3

REPORT INFORMATION
  Report Type: Spontaneous
  Country: US (occurrence: US)
  Receive Date: 20150915
  Receipt Date: 20150915
  Transmission Date: 20151125
  Serious: No
  Sender: FDA-Public Use
  Company Number: US-BANPHARM-20153947

PATIENT
  Age: 63 Year
  Sex: Female
  Weight: 102.06 kg

DRUGS (2)
  1. ZYRTEC [Suspect]
     Active Substance: CETIRIZINE HYDROCHLORIDE
     Indication: FATIGUE
     Dosage: 1 DF,
     Route: 048
  2. UNSPECIFIED DIABETIC MEDICATION [Concomitant]
     Indication: DIABETES MELLITUS

REACTIONS (1)
  - Somnolence [Unknown]
